FAERS Safety Report 25840461 (Version 1)
Quarter: 2025Q3

REPORT INFORMATION
  Report Type: Spontaneous
  Country: US (occurrence: US)
  Receive Date: 20250924
  Receipt Date: 20250924
  Transmission Date: 20251021
  Serious: Yes (Other)
  Sender: AMGEN
  Company Number: US-AMGEN-USASP2025186879

PATIENT
  Age: 38 Year
  Sex: Male

DRUGS (1)
  1. REPATHA [Suspect]
     Active Substance: EVOLOCUMAB
     Indication: Product used for unknown indication
     Route: 058
     Dates: start: 20250829

REACTIONS (19)
  - Angina pectoris [Unknown]
  - Neuropathy peripheral [Unknown]
  - Hepatic enzyme increased [Unknown]
  - Palpitations [Unknown]
  - Pain [Unknown]
  - Photophobia [Unknown]
  - Paraesthesia [Unknown]
  - Memory impairment [Unknown]
  - Hyperaesthesia teeth [Unknown]
  - Abdominal pain upper [Unknown]
  - Swelling [Unknown]
  - Feeling abnormal [Unknown]
  - Insomnia [Unknown]
  - Fatigue [Unknown]
  - Diarrhoea [Unknown]
  - Urinary tract infection [Unknown]
  - Influenza like illness [Unknown]
  - Swelling face [Unknown]
  - Arthralgia [Unknown]

NARRATIVE: CASE EVENT DATE: 20250101
